FAERS Safety Report 6101056-0 (Version None)
Quarter: 2009Q1

REPORT INFORMATION
  Report Type: 
  Country: None (occurrence: None)
  Receive Date: 20090225
  Receipt Date: 20090214
  Transmission Date: 20090719
  Serious: Yes (Other)
  Sender: FDA-Public Use
  Company Number: CHPA2009USA04793

PATIENT
  Age: 32 Year
  Sex: Male
  Weight: 84.4 kg

DRUGS (1)
  1. EX-LAX REG STR CHOCOLATED LAX PCS SEN (NCH)(SENNA GLYCOSIDES (CA SALTS [Suspect]
     Indication: CONSTIPATION
     Dosage: 120 MG, ONCE SINGLE, ORAL
     Route: 048
     Dates: start: 20090207, end: 20090208

REACTIONS (5)
  - BLOOD POTASSIUM INCREASED [None]
  - DIARRHOEA [None]
  - OVERDOSE [None]
  - PARAESTHESIA [None]
  - WEIGHT DECREASED [None]
